FAERS Safety Report 9546470 (Version 1)
Quarter: 2013Q3

REPORT INFORMATION
  Report Type: Spontaneous
  Country: CH (occurrence: CH)
  Receive Date: 20130923
  Receipt Date: 20130923
  Transmission Date: 20140515
  Serious: Yes (Hospitalization)
  Sender: FDA-Public Use
  Company Number: CH-ROCHE-1277954

PATIENT
  Age: 67 Year
  Sex: Female
  Weight: 63 kg

DRUGS (9)
  1. MABTHERA [Suspect]
     Indication: B-CELL LYMPHOMA
     Dosage: LAST DOSE PRIOR TO SAE WAS 28/FEB/2013
     Route: 041
     Dates: start: 20110803
  2. REVLIMID [Suspect]
     Indication: PRODUCT USED FOR UNKNOWN INDICATION
     Route: 048
     Dates: start: 20110720, end: 20111123
  3. VOLTAREN [Suspect]
     Indication: PRODUCT USED FOR UNKNOWN INDICATION
     Route: 048
  4. ASPIRIN CARDIO [Concomitant]
     Route: 048
  5. SORTIS [Concomitant]
     Route: 048
  6. BELOC [Concomitant]
     Route: 048
  7. CO-DIOVANE [Concomitant]
     Dosage: 12.5 MG/160 MG
     Route: 048
  8. SYMBICORT [Concomitant]
     Route: 048
  9. ESTRADOT [Concomitant]
     Dosage: STRENGTH- 0.78 MG
     Route: 062

REACTIONS (2)
  - Asthma [Not Recovered/Not Resolved]
  - Dyspnoea [Recovered/Resolved]
